FAERS Safety Report 8598358-5 (Version None)
Quarter: 2012Q3

REPORT INFORMATION
  Report Type: 
  Country: None (occurrence: None)
  Receive Date: 20120816
  Receipt Date: 20120605
  Transmission Date: 20120928
  Serious: Yes (Congenital Anomaly, Other)
  Sender: FDA-Public Use
  Company Number: US-TEVA-2011003165

PATIENT
  Sex: Male

DRUGS (1)
  1. PROVIGIL [Suspect]
     Indication: NARCOLEPSY
     Route: 065

REACTIONS (5)
  - CRANIOFACIAL DYSOSTOSIS [None]
  - POSITIONAL PLAGIOCEPHALY [None]
  - CONGENITAL TORTICOLLIS [None]
  - GASTROOESOPHAGEAL REFLUX DISEASE [None]
  - BRACHYCEPHALY [None]
